FAERS Safety Report 8143360-0 (Version None)
Quarter: 2012Q1

REPORT INFORMATION
  Report Type: 
  Country: None (occurrence: None)
  Receive Date: 20120217
  Receipt Date: 20120203
  Transmission Date: 20120608
  Serious: Yes (Hospitalization, Other)
  Sender: FDA-Public Use
  Company Number: CA-JNJFOC-20110502910

PATIENT
  Sex: Female
  Weight: 50.3 kg

DRUGS (2)
  1. REMICADE [Suspect]
     Route: 042
     Dates: start: 20101025
  2. REMICADE [Suspect]
     Indication: CROHN'S DISEASE
     Route: 042
     Dates: start: 20070301

REACTIONS (3)
  - SKIN CHAPPED [None]
  - LYMPHANGITIS [None]
  - CELLULITIS [None]
